FAERS Safety Report 6842609-1 (Version None)
Quarter: 2010Q3

REPORT INFORMATION
  Report Type: 
  Country: None (occurrence: None)
  Receive Date: 20100714
  Receipt Date: 20070727
  Transmission Date: 20110219
  Serious: Yes (Other)
  Sender: FDA-Public Use
  Company Number: US-PFIZER INC-2007064421

PATIENT
  Sex: Female
  Weight: 61.4 kg

DRUGS (7)
  1. CHANTIX [Suspect]
     Indication: SMOKING CESSATION THERAPY
     Dates: start: 20070401
  2. CYMBALTA [Concomitant]
  3. XANAX [Concomitant]
  4. NEURONTIN [Concomitant]
  5. MOTRIN [Concomitant]
  6. TRAMADOL [Concomitant]
  7. VICODIN ES [Concomitant]

REACTIONS (3)
  - DEPRESSION [None]
  - INITIAL INSOMNIA [None]
  - SLEEP DISORDER [None]
